FAERS Safety Report 6725778-3 (Version None)
Quarter: 2010Q2

REPORT INFORMATION
  Report Type: 
  Country: None (occurrence: None)
  Receive Date: 20100512
  Receipt Date: 20100503
  Transmission Date: 20101027
  Serious: Yes (Other)
  Sender: FDA-Public Use
  Company Number: 2010SP018323

PATIENT
  Age: 14 Year
  Sex: Male
  Weight: 53.5 kg

DRUGS (1)
  1. PEGINTERFERON ALFA-2B [Suspect]
     Indication: HEPATITIS B
     Dates: start: 20100101

REACTIONS (4)
  - CONDITION AGGRAVATED [None]
  - HEPATITIS B [None]
  - LEUKOPENIA [None]
  - OFF LABEL USE [None]
